FAERS Safety Report 9006483 (Version 2)
Quarter: 2013Q2

REPORT INFORMATION
  Report Type: Spontaneous
  Country: US (occurrence: US)
  Receive Date: 20130110
  Receipt Date: 20130415
  Transmission Date: 20140414
  Serious: No
  Sender: FDA-Public Use
  Company Number: US-PFIZER INC-2013011422

PATIENT
  Age: 47 Year
  Sex: Male
  Weight: 99.77 kg

DRUGS (4)
  1. GEODON [Suspect]
     Indication: BIPOLAR DISORDER
     Dosage: 40MG IN MORNING AND 80MG IN EVENING
     Route: 048
     Dates: start: 201212
  2. GEODON [Suspect]
     Indication: SLEEP DISORDER
     Dosage: 20 MG, UNK
  3. GEODON [Suspect]
     Indication: ATTENTION DEFICIT/HYPERACTIVITY DISORDER
  4. AMBIEN [Concomitant]
     Indication: SLEEP DISORDER
     Dosage: UNK, AS NEEDED

REACTIONS (6)
  - Somnolence [Not Recovered/Not Resolved]
  - Drug intolerance [Unknown]
  - Anxiety [Unknown]
  - Panic reaction [Unknown]
  - Feeling of despair [Unknown]
  - Off label use [Unknown]
